FAERS Safety Report 12406427 (Version 1)
Quarter: 2016Q2

REPORT INFORMATION
  Report Type: Spontaneous
  Country: US (occurrence: US)
  Receive Date: 20160526
  Receipt Date: 20160526
  Transmission Date: 20160815
  Serious: Yes (Life-Threatening, Hospitalization, Other)
  Sender: FDA-Public Use
  Company Number: US-009507513-1605USA011558

PATIENT
  Sex: Male
  Weight: 90.25 kg

DRUGS (1)
  1. JANUMET [Suspect]
     Active Substance: METFORMIN HYDROCHLORIDE\SITAGLIPTIN PHOSPHATE
     Indication: TYPE 2 DIABETES MELLITUS
     Dosage: 50-1000 MG, BID
     Route: 048
     Dates: start: 20070621, end: 20150317

REACTIONS (12)
  - Pancreatic carcinoma [Unknown]
  - Erectile dysfunction [Unknown]
  - Hypogonadism male [Unknown]
  - Blood triglycerides increased [Unknown]
  - Constipation [Unknown]
  - Sleep apnoea syndrome [Unknown]
  - Rash [Recovered/Resolved]
  - Arteriosclerosis coronary artery [Unknown]
  - Benign prostatic hyperplasia [Unknown]
  - Hyperlipidaemia [Unknown]
  - Essential hypertension [Unknown]
  - Chronic obstructive pulmonary disease [Not Recovered/Not Resolved]

NARRATIVE: CASE EVENT DATE: 201503
